FAERS Safety Report 15534900 (Version 1)
Quarter: 2018Q4

REPORT INFORMATION
  Report Type: Spontaneous
  Country: US (occurrence: US)
  Receive Date: 20181022
  Receipt Date: 20181022
  Transmission Date: 20190205
  Serious: No
  Sender: FDA-Public Use
  Company Number: US-TEVA-2018-US-963490

PATIENT
  Sex: Female

DRUGS (1)
  1. ACT OLMESARTAN/HCT [Suspect]
     Active Substance: HYDROCHLOROTHIAZIDE\OLMESARTAN MEDOXOMIL
     Indication: HYPERTENSION
     Route: 048
     Dates: start: 2008

REACTIONS (1)
  - Blood potassium increased [Recovering/Resolving]

NARRATIVE: CASE EVENT DATE: 2018
